FAERS Safety Report 9607499 (Version 2)
Quarter: 2013Q4

REPORT INFORMATION
  Report Type: Spontaneous
  Country: IT (occurrence: None)
  Receive Date: 20131004
  Receipt Date: 20131018
  Transmission Date: 20140711
  Serious: Yes (Other)
  Sender: FDA-Public Use
  Company Number: 2013P1019713

PATIENT
  Sex: 0

DRUGS (1)
  1. LITHIUM [Suspect]

REACTIONS (2)
  - Renal cyst [None]
  - Tubulointerstitial nephritis [None]
